FAERS Safety Report 17959671 (Version 1)
Quarter: 2020Q2

REPORT INFORMATION
  Report Type: Spontaneous
  Country: KZ (occurrence: KZ)
  Receive Date: 20200629
  Receipt Date: 20200629
  Transmission Date: 20200714
  Serious: Yes (Hospitalization, Other)
  Sender: FDA-Public Use
  Company Number: KZ-ABBVIE-20P-230-3457732-00

PATIENT
  Age: 74 Year
  Sex: Female

DRUGS (6)
  1. AMBROXOL [Concomitant]
     Active Substance: AMBROXOL
     Indication: COVID-19
  2. CEFTRIAXONE. [Concomitant]
     Active Substance: CEFTRIAXONE
     Indication: COVID-19
  3. KALETRA [Suspect]
     Active Substance: LOPINAVIR\RITONAVIR
     Indication: COVID-19
     Dosage: 400/100 MG
     Route: 048
  4. LIDOCAINUM [Concomitant]
     Indication: COVID-19
  5. PERINDOPRIL [Concomitant]
     Active Substance: PERINDOPRIL
     Indication: PRODUCT USED FOR UNKNOWN INDICATION
  6. LORATADINUM [Concomitant]
     Indication: COVID-19

REACTIONS (4)
  - Toxicity to various agents [Recovered/Resolved]
  - Nodal rhythm [Recovered/Resolved]
  - Off label use [Unknown]
  - Sinus arrest [Recovered/Resolved]
